FAERS Safety Report 9159247 (Version 2)
Quarter: 2013Q2

REPORT INFORMATION
  Report Type: Report from Study
  Country: US (occurrence: US)
  Receive Date: 20130313
  Receipt Date: 20130503
  Transmission Date: 20140414
  Serious: Yes (Death)
  Sender: FDA-Public Use
  Company Number: US-CELGENEUS-163-20785-13030595

PATIENT
  Age: 69 Year
  Sex: Female

DRUGS (61)
  1. THALOMID [Suspect]
     Indication: PLASMA CELL MYELOMA
     Route: 048
     Dates: start: 2004
  2. THALOMID [Suspect]
     Route: 048
     Dates: start: 20041122
  3. THALOMID [Suspect]
     Route: 048
     Dates: start: 20050317
  4. THALOMID [Suspect]
     Route: 048
  5. THALOMID [Suspect]
     Route: 048
     Dates: end: 200710
  6. CISPLATIN [Suspect]
     Indication: PLASMA CELL MYELOMA
     Route: 065
     Dates: start: 2004
  7. CISPLATIN [Suspect]
     Route: 065
     Dates: start: 20041122
  8. CISPLATIN [Suspect]
     Route: 065
     Dates: start: 20050317
  9. CYCLOPHOSPHAMIDE [Suspect]
     Indication: PLASMA CELL MYELOMA
     Route: 065
     Dates: start: 2004
  10. CYCLOPHOSPHAMIDE [Suspect]
     Route: 065
     Dates: start: 20041122
  11. CYCLOPHOSPHAMIDE [Suspect]
     Route: 065
     Dates: start: 20050317
  12. DEXAMETHASONE [Suspect]
     Indication: PLASMA CELL MYELOMA
     Route: 065
     Dates: start: 2004
  13. DEXAMETHASONE [Suspect]
     Route: 065
     Dates: start: 20041122
  14. DEXAMETHASONE [Suspect]
     Route: 065
     Dates: start: 20050317
  15. DEXAMETHASONE [Suspect]
     Route: 065
  16. DEXAMETHASONE [Suspect]
     Route: 065
     Dates: end: 200710
  17. DOXORUBICIN [Suspect]
     Indication: PLASMA CELL MYELOMA
     Route: 065
     Dates: start: 2004
  18. DOXORUBICIN [Suspect]
     Route: 065
     Dates: start: 20041122
  19. DOXORUBICIN [Suspect]
     Route: 065
     Dates: start: 20050317
  20. ETOPOSIDE [Suspect]
     Indication: PLASMA CELL MYELOMA
     Route: 065
     Dates: start: 2004
  21. ETOPOSIDE [Suspect]
     Route: 065
     Dates: start: 20041122
  22. ETOPOSIDE [Suspect]
     Route: 065
     Dates: start: 20050317
  23. MELPHALAN [Suspect]
     Indication: MYELODYSPLASTIC SYNDROME
     Route: 065
     Dates: start: 200409
  24. MELPHALAN [Suspect]
     Route: 065
     Dates: start: 20111107
  25. VELCADE [Suspect]
     Indication: PLASMA CELL MYELOMA
     Route: 065
     Dates: start: 2004
  26. VELCADE [Suspect]
     Route: 065
     Dates: start: 20041122
  27. VELCADE [Suspect]
     Route: 065
     Dates: start: 20050317
  28. VELCADE [Suspect]
     Route: 065
  29. HALCION [Concomitant]
     Indication: PRODUCT USED FOR UNKNOWN INDICATION
     Dosage: .25 MILLIGRAM
     Route: 065
  30. LITHIUM CARBONATE [Concomitant]
     Indication: NEUTROPENIA
     Dosage: 600 MILLIEQUIVALENTS
     Route: 065
     Dates: start: 201202
  31. LITHIUM CARBONATE [Concomitant]
     Dosage: 300 MILLIEQUIVALENTS
     Route: 065
     Dates: start: 201204
  32. PROCRIT [Concomitant]
     Indication: PRODUCT USED FOR UNKNOWN INDICATION
     Dosage: 40000 IU (INTERNATIONAL UNIT)
     Route: 065
  33. PROCRIT [Concomitant]
     Dosage: 40000 IU (INTERNATIONAL UNIT)
     Route: 065
     Dates: start: 201204
  34. HYDREA [Concomitant]
     Indication: WHITE BLOOD CELL COUNT
     Dosage: 300 MILLIGRAM
     Route: 065
  35. ACYCLOVIR [Concomitant]
     Indication: PRODUCT USED FOR UNKNOWN INDICATION
     Dosage: 400 MILLIGRAM
     Route: 065
  36. ALLEGRA [Concomitant]
     Indication: PRODUCT USED FOR UNKNOWN INDICATION
     Dosage: 180 MILLIGRAM
     Route: 065
  37. AMITRIPTYLINE [Concomitant]
     Indication: PRODUCT USED FOR UNKNOWN INDICATION
     Dosage: 25 MILLIGRAM
     Route: 065
  38. ATARAX [Concomitant]
     Indication: PRODUCT USED FOR UNKNOWN INDICATION
     Route: 065
  39. ATIVAN [Concomitant]
     Indication: PRODUCT USED FOR UNKNOWN INDICATION
     Route: 065
  40. CALCIUM WITH VITAMIN D [Concomitant]
     Indication: PRODUCT USED FOR UNKNOWN INDICATION
     Route: 065
  41. CIPRO [Concomitant]
     Indication: PRODUCT USED FOR UNKNOWN INDICATION
     Dosage: 500 MILLIGRAM
     Route: 065
  42. ESTRADIOL [Concomitant]
     Indication: PRODUCT USED FOR UNKNOWN INDICATION
     Route: 065
  43. LEVAQUIN [Concomitant]
     Indication: PROPHYLAXIS
     Dosage: 500 MILLIGRAM
     Route: 065
  44. FLONASE [Concomitant]
     Indication: PRODUCT USED FOR UNKNOWN INDICATION
     Route: 065
  45. LASIX [Concomitant]
     Indication: PRODUCT USED FOR UNKNOWN INDICATION
     Route: 065
  46. LOPRESSOR [Concomitant]
     Indication: PRODUCT USED FOR UNKNOWN INDICATION
     Route: 065
  47. METANX [Concomitant]
     Indication: PRODUCT USED FOR UNKNOWN INDICATION
     Dosage: 1 TABLET
     Route: 065
  48. METFORMIN [Concomitant]
     Indication: PRODUCT USED FOR UNKNOWN INDICATION
     Dosage: 500 MILLIGRAM
     Route: 065
  49. MUCINEX [Concomitant]
     Indication: PRODUCT USED FOR UNKNOWN INDICATION
     Route: 065
  50. MINOXIDIL [Concomitant]
     Indication: PRODUCT USED FOR UNKNOWN INDICATION
     Dosage: 10 MILLILITER
     Route: 065
  51. OXYCODONE [Concomitant]
     Indication: PRODUCT USED FOR UNKNOWN INDICATION
     Dosage: 5
     Route: 065
  52. PEPCID AC [Concomitant]
     Indication: PRODUCT USED FOR UNKNOWN INDICATION
     Route: 065
  53. POTASSIUM CHLORIDE [Concomitant]
     Indication: PRODUCT USED FOR UNKNOWN INDICATION
     Dosage: 40 MILLIEQUIVALENTS
     Route: 065
  54. SENOKOT [Concomitant]
     Indication: PRODUCT USED FOR UNKNOWN INDICATION
     Route: 065
  55. SINGULAIR [Concomitant]
     Indication: HYPERSENSITIVITY
     Dosage: 10 MILLIGRAM
     Route: 065
  56. SYNTHROID [Concomitant]
     Indication: PRODUCT USED FOR UNKNOWN INDICATION
     Dosage: 100 MICROGRAM
     Route: 065
  57. ZOLOFT [Concomitant]
     Indication: PRODUCT USED FOR UNKNOWN INDICATION
     Dosage: 50 MILLIGRAM
     Route: 065
  58. BENADRYL [Concomitant]
     Indication: HYPERSENSITIVITY
     Dosage: 10 MILLIGRAM
     Route: 065
  59. ELAVIL [Concomitant]
     Indication: PRODUCT USED FOR UNKNOWN INDICATION
     Dosage: 10 MILLIGRAM
     Route: 065
  60. TAMIFLU [Concomitant]
     Indication: PROPHYLAXIS
     Dosage: 10 MILLIGRAM
     Route: 065
  61. ASTEPRO [Concomitant]
     Indication: PRODUCT USED FOR UNKNOWN INDICATION
     Route: 065

REACTIONS (1)
  - Acute myeloid leukaemia [Fatal]
